FAERS Safety Report 5452765-8 (Version None)
Quarter: 2007Q3

REPORT INFORMATION
  Report Type: 
  Country: None (occurrence: None)
  Receive Date: 20070914
  Receipt Date: 20070831
  Transmission Date: 20080115
  Serious: Yes (Hospitalization)
  Sender: FDA-Public Use
  Company Number: US-AMGEN-STX238761

PATIENT
  Sex: Female
  Weight: 75.4 kg

DRUGS (14)
  1. ENBREL [Suspect]
     Indication: RHEUMATOID ARTHRITIS
     Route: 058
     Dates: start: 20010526, end: 20070706
  2. METHOTREXATE [Concomitant]
  3. FELODIPINE [Concomitant]
  4. ALLEGRA [Concomitant]
  5. FLONASE [Concomitant]
     Route: 045
  6. BENAZEPRIL HYDROCHLORIDE [Concomitant]
  7. HYDROCHLOROTHIAZIDE [Concomitant]
  8. PREDNISONE TAB [Concomitant]
  9. FOLIC ACID [Concomitant]
  10. TIMOLOL MALEATE [Concomitant]
     Route: 047
  11. PRILOSEC [Concomitant]
  12. PLAQUENIL [Concomitant]
     Dates: start: 20031201, end: 20060801
  13. CELEBREX [Concomitant]
  14. LEFLUNOMIDE [Concomitant]
     Dates: start: 20060301, end: 20060501

REACTIONS (3)
  - PNEUMONIA [None]
  - RHEUMATOID ARTHRITIS [None]
  - TUBERCULOSIS SKIN TEST POSITIVE [None]
